FAERS Safety Report 9753063 (Version 1)
Quarter: 2013Q4

REPORT INFORMATION
  Report Type: Spontaneous
  Country: US (occurrence: None)
  Receive Date: 20131213
  Receipt Date: 20131213
  Transmission Date: 20140711
  Serious: Yes (Other)
  Sender: FDA-Public Use
  Company Number: None

PATIENT
  Age: 64 Year
  Sex: Female
  Weight: 60.78 kg

DRUGS (2)
  1. COMPOUNDED BHRT FUSED PELLET TESTOSTERONE COLLEGE PHARMACY (COLORADO SPRINGS [Suspect]
     Indication: THERAPEUTIC PROCEDURE
     Dosage: MULTIPLE PELLETS SUBCUTANEOUS
     Route: 058
     Dates: start: 20130401, end: 20131211
  2. COMPOUNDED BHRT FUSED PELLET TESTOSTERONE COLLEGE PHARMACY (COLORADO SPRINGS [Suspect]
     Indication: MENOPAUSAL SYMPTOMS
     Dosage: MULTIPLE PELLETS SUBCUTANEOUS
     Route: 058
     Dates: start: 20130401, end: 20131211

REACTIONS (12)
  - Malaise [None]
  - Back pain [None]
  - Weight increased [None]
  - Acne [None]
  - Hirsutism [None]
  - Aggression [None]
  - Implant site scar [None]
  - Product compounding quality issue [None]
  - Product solubility abnormal [None]
  - Overdose [None]
  - Blood testosterone increased [None]
  - Blood testosterone free increased [None]
